FAERS Safety Report 9628419 (Version 2)
Quarter: 2013Q4

REPORT INFORMATION
  Report Type: Spontaneous
  Country: US (occurrence: US)
  Receive Date: 20131017
  Receipt Date: 20131112
  Transmission Date: 20140711
  Serious: No
  Sender: FDA-Public Use
  Company Number: US-PFIZER INC-2013293798

PATIENT
  Sex: Male

DRUGS (3)
  1. ADVIL [Suspect]
     Indication: BACK DISORDER
     Dosage: UNK
  2. NAPROXEN SODIUM [Suspect]
     Indication: BACK DISORDER
     Dosage: UNK
  3. ACETYLSALICYLIC ACID [Suspect]
     Indication: BACK DISORDER
     Dosage: UNK

REACTIONS (2)
  - Abdominal discomfort [Unknown]
  - Product coating issue [Unknown]
